FAERS Safety Report 14251799 (Version 3)
Quarter: 2019Q3

REPORT INFORMATION
  Report Type: Spontaneous
  Country: US (occurrence: US)
  Receive Date: 20171205
  Receipt Date: 20190823
  Transmission Date: 20191004
  Serious: Yes (Other)
  Sender: FDA-Public Use
  Company Number: US-JNJFOC-20171132803

PATIENT
  Sex: Female
  Weight: 74.46 kg

DRUGS (12)
  1. HYDROXYZINE PAMOATE. [Concomitant]
     Active Substance: HYDROXYZINE PAMOATE
     Indication: NAUSEA
  2. CELEBREX [Concomitant]
     Active Substance: CELECOXIB
  3. EPIDIOLEX [Concomitant]
     Active Substance: CANNABIDIOL
  4. TOPAMAX [Suspect]
     Active Substance: TOPIRAMATE
     Route: 048
     Dates: start: 2002
  5. ONFI [Concomitant]
     Active Substance: CLOBAZAM
     Indication: SEIZURE
  6. TOPAMAX [Suspect]
     Active Substance: TOPIRAMATE
     Route: 048
     Dates: start: 2002
  7. HYDROXYZINE PAMOATE. [Concomitant]
     Active Substance: HYDROXYZINE PAMOATE
     Indication: HEADACHE
     Dosage: AS NEEDED
     Route: 065
  8. PREMARIN [Concomitant]
     Active Substance: ESTROGENS, CONJUGATED
     Indication: HORMONE REPLACEMENT THERAPY
     Route: 065
  9. KLONOPIN [Concomitant]
     Active Substance: CLONAZEPAM
     Indication: SEIZURE
     Dosage: 2MG, HALF A TABLET IN MORNING, 1 TABLET DURING,MID DAY, 1 TABLET IN EVENING
     Route: 065
  10. PLAQUENIL [Concomitant]
     Active Substance: HYDROXYCHLOROQUINE SULFATE
  11. TOPAMAX [Suspect]
     Active Substance: TOPIRAMATE
     Indication: SEIZURE
     Route: 048
     Dates: start: 1999
  12. ATIVAN [Concomitant]
     Active Substance: LORAZEPAM
     Indication: SEIZURE PROPHYLAXIS
     Dosage: AS NEEDED
     Route: 065

REACTIONS (5)
  - Blindness transient [Recovered/Resolved]
  - Visual field defect [Not Recovered/Not Resolved]
  - Myopia [Unknown]
  - Vision blurred [Not Recovered/Not Resolved]
  - Ocular discomfort [Unknown]

NARRATIVE: CASE EVENT DATE: 2013
